FAERS Safety Report 6506754-2 (Version None)
Quarter: 2009Q4

REPORT INFORMATION
  Report Type: 
  Country: None (occurrence: None)
  Receive Date: 20091221
  Receipt Date: 20091211
  Transmission Date: 20100525
  Serious: Yes (Other)
  Sender: FDA-Public Use
  Company Number: BR-PFIZER INC-2009308896

PATIENT
  Age: 58 Year

DRUGS (6)
  1. AROMASIN [Suspect]
     Indication: BREAST CANCER
     Dosage: UNK
     Route: 048
     Dates: start: 20090401
  2. LORAZEPAM [Concomitant]
     Dosage: UNK
  3. ALPRAZOLAM [Concomitant]
     Dosage: UNK
  4. MAREVAN ^NYCOMED^ [Concomitant]
     Dosage: UNK
  5. LOSARTAN [Concomitant]
     Dosage: UNK
  6. CITALOPRAM [Concomitant]
     Dosage: UNK

REACTIONS (14)
  - ANORECTAL DISCOMFORT [None]
  - ANORECTAL DISORDER [None]
  - DEPRESSION [None]
  - DIZZINESS [None]
  - DRY EYE [None]
  - GASTROINTESTINAL DISORDER [None]
  - HEADACHE [None]
  - LABYRINTHITIS [None]
  - MUSCULOSKELETAL DISCOMFORT [None]
  - NERVOUSNESS [None]
  - THROMBOSIS [None]
  - VULVOVAGINAL BURNING SENSATION [None]
  - VULVOVAGINAL DRYNESS [None]
  - WEIGHT DECREASED [None]
